FAERS Safety Report 12810418 (Version 2)
Quarter: 2016Q4

REPORT INFORMATION
  Report Type: Spontaneous
  Country: US (occurrence: US)
  Receive Date: 20161005
  Receipt Date: 20161007
  Transmission Date: 20170207
  Serious: Yes (Other)
  Sender: FDA-Public Use
  Company Number: US-JNJFOC-20160926801

PATIENT

DRUGS (2)
  1. ACETAMINOPHEN. [Suspect]
     Active Substance: ACETAMINOPHEN
     Indication: PYREXIA
     Route: 064
  2. ACETAMINOPHEN. [Suspect]
     Active Substance: ACETAMINOPHEN
     Indication: PAIN
     Route: 064

REACTIONS (3)
  - Attention deficit/hyperactivity disorder [Unknown]
  - Foetal exposure during pregnancy [Unknown]
  - Autism spectrum disorder [Unknown]
